FAERS Safety Report 11349576 (Version 2)
Quarter: 2016Q1

REPORT INFORMATION
  Report Type: Spontaneous
  Country: US (occurrence: US)
  Receive Date: 20150807
  Receipt Date: 20160215
  Transmission Date: 20160525
  Serious: Yes (Hospitalization, Other)
  Sender: FDA-Public Use
  Company Number: PHEH2015US009875

PATIENT
  Age: 10 Year
  Sex: Female

DRUGS (2)
  1. FOLIC ACID. [Concomitant]
     Active Substance: FOLIC ACID
     Indication: DOUBLE HETEROZYGOUS SICKLING DISORDERS
     Dosage: QD
     Route: 048
     Dates: start: 20150430
  2. JADENU [Suspect]
     Active Substance: DEFERASIROX
     Indication: IRON OVERLOAD
     Dosage: 1080 MG, QD (13.5 MG/KG)
     Route: 048
     Dates: start: 20150424, end: 20150511

REACTIONS (31)
  - Vomiting [Recovered/Resolved]
  - Platelet disorder [Unknown]
  - Blood glucose increased [Unknown]
  - Bence Jones protein urine present [Unknown]
  - Dehydration [Unknown]
  - Blood creatinine increased [Unknown]
  - Granulocytes abnormal [Unknown]
  - Reticulocyte count decreased [Unknown]
  - Protein total increased [Unknown]
  - Creatine urine increased [Unknown]
  - Complement factor C3 increased [Unknown]
  - Gastroenteritis [Unknown]
  - Vomiting [Recovered/Resolved]
  - Renal impairment [Recovered/Resolved]
  - Carbon dioxide decreased [Unknown]
  - Renal failure [Unknown]
  - Reticulocyte percentage increased [Unknown]
  - Blood potassium decreased [Unknown]
  - Blood alkaline phosphatase increased [Unknown]
  - Mean cell volume decreased [Unknown]
  - Blood urea increased [Unknown]
  - Blood calcium decreased [Unknown]
  - Haematocrit decreased [Unknown]
  - Blood chloride increased [Unknown]
  - Aspartate aminotransferase increased [Unknown]
  - Haemoglobin S increased [Unknown]
  - Complement factor C4 increased [Unknown]
  - Haemoglobin decreased [Unknown]
  - Mean cell haemoglobin decreased [Unknown]
  - Red cell distribution width increased [Unknown]
  - Alanine aminotransferase increased [Unknown]

NARRATIVE: CASE EVENT DATE: 20150430
